FAERS Safety Report 9763272 (Version 2)
Quarter: 2014Q1

REPORT INFORMATION
  Report Type: Spontaneous
  Country: US (occurrence: US)
  Receive Date: 20131216
  Receipt Date: 20140306
  Transmission Date: 20141002
  Serious: No
  Sender: FDA-Public Use
  Company Number: US-BIOGENIDEC-2013BI104785

PATIENT
  Age: 51 Year
  Sex: Female

DRUGS (5)
  1. TECFIDERA [Suspect]
     Indication: MULTIPLE SCLEROSIS
     Dates: start: 20130925
  2. TECFIDERA [Suspect]
     Indication: MULTIPLE SCLEROSIS
     Route: 048
     Dates: start: 20131006, end: 20131012
  3. TECFIDERA [Suspect]
     Indication: MULTIPLE SCLEROSIS
     Route: 048
     Dates: start: 20131013, end: 20140215
  4. ASPIRIN [Concomitant]
  5. IBUPROFEN [Concomitant]

REACTIONS (26)
  - Band sensation [Recovered/Resolved]
  - Muscle tightness [Not Recovered/Not Resolved]
  - Gastric disorder [Recovered/Resolved]
  - Urticaria [Not Recovered/Not Resolved]
  - Emotional distress [Unknown]
  - Underdose [Unknown]
  - Oropharyngeal pain [Unknown]
  - Fatigue [Unknown]
  - Weight decreased [Unknown]
  - Drug intolerance [Unknown]
  - Dysgeusia [Recovered/Resolved]
  - Cow^s milk intolerance [Unknown]
  - Dehydration [Unknown]
  - Multiple sclerosis [Unknown]
  - Rhinorrhoea [Recovered/Resolved]
  - Influenza like illness [Recovered/Resolved]
  - Coordination abnormal [Not Recovered/Not Resolved]
  - Malaise [Unknown]
  - Cognitive disorder [Not Recovered/Not Resolved]
  - Diarrhoea [Not Recovered/Not Resolved]
  - Vomiting [Recovered/Resolved]
  - Flushing [Recovered/Resolved]
  - Nausea [Not Recovered/Not Resolved]
  - Rash generalised [Not Recovered/Not Resolved]
  - Pruritus [Recovered/Resolved]
  - Rash [Recovered/Resolved]
